FAERS Safety Report 13909199 (Version 1)
Quarter: 2017Q3

REPORT INFORMATION
  Report Type: Report from Study
  Country: US (occurrence: US)
  Receive Date: 20170828
  Receipt Date: 20170828
  Transmission Date: 20171127
  Serious: Yes (Hospitalization, Other)
  Sender: FDA-Public Use
  Company Number: US-GILEAD-2017-0290120

PATIENT
  Age: 84 Year
  Sex: Female

DRUGS (14)
  1. COUMADIN [Concomitant]
     Active Substance: WARFARIN SODIUM
  2. NORVASC [Concomitant]
     Active Substance: AMLODIPINE BESYLATE
  3. ECOTRIN [Concomitant]
     Active Substance: ASPIRIN
  4. LASIX [Concomitant]
     Active Substance: FUROSEMIDE
  5. ALBUTEROL                          /00139501/ [Concomitant]
     Active Substance: ALBUTEROL
  6. PRAVASTATIN. [Concomitant]
     Active Substance: PRAVASTATIN
  7. PANTOPRAZOLE [Concomitant]
     Active Substance: PANTOPRAZOLE
  8. BUMEX [Concomitant]
     Active Substance: BUMETANIDE
  9. CALTRATE                           /00944201/ [Concomitant]
     Active Substance: CALCIUM CARBONATE\CHOLECALCIFEROL
  10. COLCHICINE. [Concomitant]
     Active Substance: COLCHICINE
  11. AMBRISENTAN [Suspect]
     Active Substance: AMBRISENTAN
     Indication: PULMONARY HYPERTENSION
     Dosage: 10 MG, QD
     Route: 065
     Dates: start: 20120614
  12. FOLIC ACID. [Concomitant]
     Active Substance: FOLIC ACID
  13. ALLOPURINOL. [Concomitant]
     Active Substance: ALLOPURINOL
  14. LEVOTHYROXINE. [Concomitant]
     Active Substance: LEVOTHYROXINE

REACTIONS (1)
  - Pneumonia [Recovered/Resolved]

NARRATIVE: CASE EVENT DATE: 20170710
